FAERS Safety Report 14041125 (Version 3)
Quarter: 2018Q2

REPORT INFORMATION
  Report Type: Spontaneous
  Country: US (occurrence: US)
  Receive Date: 20171004
  Receipt Date: 20180411
  Transmission Date: 20180711
  Serious: No
  Sender: FDA-Public Use
  Company Number: US-AMGEN-USASP2017122551

PATIENT
  Age: 57 Year
  Sex: Female

DRUGS (1)
  1. PROLIA [Suspect]
     Active Substance: DENOSUMAB
     Indication: OSTEOPOROSIS POSTMENOPAUSAL
     Dosage: Q6MO
     Route: 065
     Dates: start: 2016, end: 20170719

REACTIONS (16)
  - Headache [Unknown]
  - Bed rest [Unknown]
  - Arthralgia [Recovering/Resolving]
  - Muscle mass [Recovering/Resolving]
  - Bone pain [Recovering/Resolving]
  - Myalgia [Recovering/Resolving]
  - Neuralgia [Recovering/Resolving]
  - Mobility decreased [Unknown]
  - Neuralgia [Unknown]
  - Pain in extremity [Unknown]
  - Drug dose omission [Unknown]
  - Eye pain [Unknown]
  - Pain [Unknown]
  - Feeling abnormal [Recovering/Resolving]
  - Muscle spasms [Unknown]
  - Fatigue [Recovering/Resolving]

NARRATIVE: CASE EVENT DATE: 201607
